FAERS Safety Report 17261429 (Version 1)
Quarter: 2019Q4

REPORT INFORMATION
  Report Type: Spontaneous
  Country: US (occurrence: US)
  Receive Date: 20191217
  Receipt Date: 20191217
  Transmission Date: 20200122
  Serious: No
  Sender: FDA-Public Use
  Company Number: None

PATIENT
  Age: 56 Year
  Sex: Male
  Weight: 118 kg

DRUGS (1)
  1. CEFAZOLIN/DEXTROSE [Suspect]
     Active Substance: CEFAZOLIN\DEXTROSE
     Indication: ANTIBIOTIC PROPHYLAXIS
     Route: 042
     Dates: start: 20191018, end: 20191018

REACTIONS (2)
  - Angioedema [None]
  - Anaphylactic reaction [None]

NARRATIVE: CASE EVENT DATE: 20191018
